FAERS Safety Report 25026930 (Version 2)
Quarter: 2025Q1

REPORT INFORMATION
  Report Type: Spontaneous
  Country: US (occurrence: US)
  Receive Date: 20250301
  Receipt Date: 20250301
  Transmission Date: 20250409
  Serious: No
  Sender: SANOFI AVENTIS
  Company Number: US-SANOFI-02419622

PATIENT
  Age: 65 Year
  Sex: Female

DRUGS (7)
  1. DUPIXENT [Suspect]
     Active Substance: DUPILUMAB
     Indication: Asthma
     Dosage: 300 MG, QOW
     Route: 058
  2. ADVAIR HFA [Concomitant]
     Active Substance: FLUTICASONE PROPIONATE\SALMETEROL XINAFOATE
  3. BUMETANIDE [Concomitant]
     Active Substance: BUMETANIDE
  4. LEVOTHYROXINE [Concomitant]
     Active Substance: LEVOTHYROXINE
  5. MOUNJARO [Concomitant]
     Active Substance: TIRZEPATIDE
  6. SOLIFENACIN [Concomitant]
     Active Substance: SOLIFENACIN
  7. SPIRONOLACTONE [Concomitant]
     Active Substance: SPIRONOLACTONE

REACTIONS (5)
  - Pruritus [Recovering/Resolving]
  - Injection site pain [Unknown]
  - Therapeutic response delayed [Unknown]
  - Accidental exposure to product [Unknown]
  - Exposure via skin contact [Unknown]
